FAERS Safety Report 23794756 (Version 1)
Quarter: 2024Q2

REPORT INFORMATION
  Report Type: Spontaneous
  Country: US (occurrence: US)
  Receive Date: 20240429
  Receipt Date: 20240429
  Transmission Date: 20240715
  Serious: No
  Sender: FDA-Public Use
  Company Number: US-BAYER-2024A052524

PATIENT

DRUGS (1)
  1. INTERFERON BETA-1B [Suspect]
     Active Substance: INTERFERON BETA-1B

REACTIONS (3)
  - Influenza like illness [Unknown]
  - Adverse drug reaction [Unknown]
  - Fatigue [Unknown]
